FAERS Safety Report 17272727 (Version 1)
Quarter: 2020Q1

REPORT INFORMATION
  Report Type: Spontaneous
  Country: US (occurrence: US)
  Receive Date: 20191224
  Receipt Date: 20191224
  Transmission Date: 20200409
  Serious: No
  Sender: FDA-Public Use
  Company Number: None

PATIENT
  Age: 64 Year
  Sex: Male

DRUGS (2)
  1. CAPECITABIN 500MG TAB [Suspect]
     Active Substance: CAPECITABINE
     Dosage: ?          OTHER FREQUENCY:4TAB BIW EVERY21DA;?
     Route: 048
     Dates: start: 20191203
  2. METFORMIN [Concomitant]
     Active Substance: METFORMIN HYDROCHLORIDE

REACTIONS (1)
  - Therapy cessation [None]
